FAERS Safety Report 4360750-2 (Version None)
Quarter: 2004Q2

REPORT INFORMATION
  Report Type: 
  Country: None (occurrence: None)
  Receive Date: 20040517
  Receipt Date: 20040507
  Transmission Date: 20050107
  Serious: Yes (Death)
  Sender: FDA-Public Use
  Company Number: 2004-04-0807

PATIENT
  Age: 81 Year
  Sex: Female

DRUGS (1)
  1. INTRON A (INTERFERON ALFA 2B RECOMBINANT) MULTIDOSE PEN [Suspect]
     Indication: RENAL CELL CARCINOMA STAGE UNSPECIFIED
     Dosage: 10 MIU
     Dates: end: 20040406

REACTIONS (1)
  - MULTI-ORGAN FAILURE [None]
